FAERS Safety Report 8134859-1 (Version None)
Quarter: 2012Q1

REPORT INFORMATION
  Report Type: 
  Country: None (occurrence: None)
  Receive Date: 20120214
  Receipt Date: 20120208
  Transmission Date: 20120608
  Serious: No
  Sender: FDA-Public Use
  Company Number: US-PFIZER INC-2012034585

PATIENT
  Sex: Female

DRUGS (1)
  1. XALKORI [Suspect]
     Indication: LUNG NEOPLASM MALIGNANT
     Dosage: 250 MG, DAILY
     Dates: start: 20100131

REACTIONS (5)
  - VISUAL IMPAIRMENT [None]
  - DIZZINESS [None]
  - NAUSEA [None]
  - NEUROPATHY PERIPHERAL [None]
  - DYSGEUSIA [None]
